FAERS Safety Report 25166519 (Version 1)
Quarter: 2025Q2

REPORT INFORMATION
  Report Type: Spontaneous
  Country: NL (occurrence: NL)
  Receive Date: 20250407
  Receipt Date: 20250407
  Transmission Date: 20250717
  Serious: Yes (Life-Threatening, Other)
  Sender: BOEHRINGER INGELHEIM
  Company Number: None

PATIENT
  Age: 77 Year
  Sex: Male
  Weight: 70 kg

DRUGS (9)
  1. EMPAGLIFLOZIN [Suspect]
     Active Substance: EMPAGLIFLOZIN
     Indication: Type 2 diabetes mellitus
     Dates: start: 20221201, end: 20241201
  2. AMOXICILLINE / Brand name not specified [Concomitant]
     Indication: Product used for unknown indication
  3. DOXYCYCLINE [Concomitant]
     Active Substance: DOXYCYCLINE
     Indication: Product used for unknown indication
  4. AMLODIPINE TABLET   5MG / Brand name not specified [Concomitant]
     Indication: Product used for unknown indication
  5. LOSARTAN TABLET FO 100MG / Brand name not specified [Concomitant]
     Indication: Product used for unknown indication
  6. METFORMINE TABLET  1000MG / Brand name not specified [Concomitant]
     Indication: Product used for unknown indication
  7. GLICLAZIDE TABLET MGA 30MG / Brand name not specified [Concomitant]
     Indication: Product used for unknown indication
  8. TAMSULOSIN HYDROCHLORIDE [Concomitant]
     Active Substance: TAMSULOSIN HYDROCHLORIDE
     Indication: Product used for unknown indication
  9. PANTOPRAZOLE [Concomitant]
     Active Substance: PANTOPRAZOLE
     Indication: Product used for unknown indication

REACTIONS (7)
  - Candida infection [Not Recovered/Not Resolved]
  - Urogenital infection fungal [Not Recovered/Not Resolved]
  - Pyelonephritis [Not Recovered/Not Resolved]
  - Epididymitis [Not Recovered/Not Resolved]
  - Urinary tract infection [Not Recovered/Not Resolved]
  - Prostatitis [Not Recovered/Not Resolved]
  - Postrenal failure [Not Recovered/Not Resolved]
